FAERS Safety Report 9846152 (Version 2)
Quarter: 2014Q1

REPORT INFORMATION
  Report Type: Spontaneous
  Country: US (occurrence: US)
  Receive Date: 20140127
  Receipt Date: 20140313
  Transmission Date: 20141002
  Serious: Yes (Death)
  Sender: FDA-Public Use
  Company Number: US-JNJFOC-20140115234

PATIENT
  Age: 77 Year
  Sex: Male
  Weight: 121.56 kg

DRUGS (3)
  1. XARELTO [Suspect]
     Indication: CEREBROVASCULAR ACCIDENT PROPHYLAXIS
     Route: 048
     Dates: start: 201301
  2. XARELTO [Suspect]
     Indication: ATRIAL FIBRILLATION
     Route: 048
     Dates: start: 201301
  3. AMIODARONE [Concomitant]
     Dosage: FROM 4 YEARS
     Route: 048

REACTIONS (2)
  - Cerebrovascular accident [Fatal]
  - Haemorrhage [Unknown]
